FAERS Safety Report 4819196-2 (Version None)
Quarter: 2005Q4

REPORT INFORMATION
  Report Type: 
  Country: None (occurrence: None)
  Receive Date: 20051103
  Receipt Date: 20051101
  Transmission Date: 20060501
  Serious: Yes (Hospitalization)
  Sender: FDA-Public Use
  Company Number: US-GLAXOSMITHKLINE-A0580504A

PATIENT
  Age: 69 Year
  Sex: Female

DRUGS (1)
  1. FLONASE [Suspect]
     Dosage: 2SPR PER DAY
     Route: 045
     Dates: start: 20040101, end: 20050101

REACTIONS (2)
  - CELLULITIS [None]
  - SINUSITIS [None]
